FAERS Safety Report 4421576-4 (Version None)
Quarter: 2004Q3

REPORT INFORMATION
  Report Type: 
  Country: None (occurrence: None)
  Receive Date: 20040809
  Receipt Date: 20040809
  Transmission Date: 20050211
  Serious: Yes (Other)
  Sender: FDA-Public Use
  Company Number: None

PATIENT
  Sex: Female

DRUGS (5)
  1. MONOCLONAL ANTIBODY 17-A [Suspect]
     Indication: COLON CANCER
     Dosage: 500 MG IV THEN 100 MG Q 28 D X 4 CYCLES
     Route: 042
     Dates: start: 20040104
  2. MONOCLONAL ANTIBODY 17-A [Suspect]
     Indication: COLON CANCER
     Dosage: 500 MG IV THEN 100 MG Q 28 D X 4 CYCLES
     Route: 042
     Dates: start: 20040201
  3. MONOCLONAL ANTIBODY 17-A [Suspect]
     Indication: COLON CANCER
     Dosage: 500 MG IV THEN 100 MG Q 28 D X 4 CYCLES
     Route: 042
     Dates: start: 20040229
  4. MONOCLONAL ANTIBODY 17-A [Suspect]
     Indication: COLON CANCER
     Dosage: 500 MG IV THEN 100 MG Q 28 D X 4 CYCLES
     Route: 042
     Dates: start: 20040328
  5. MONOCLONAL ANTIBODY 17-A [Suspect]
     Indication: COLON CANCER
     Dosage: 500 MG IV THEN 100 MG Q 28 D X 4 CYCLES
     Route: 042
     Dates: start: 20040425

REACTIONS (3)
  - BREAST CANCER [None]
  - COLON CANCER [None]
  - LUNG ADENOCARCINOMA [None]
